FAERS Safety Report 9059439 (Version 2)
Quarter: 2013Q1

REPORT INFORMATION
  Report Type: Spontaneous
  Country: JP (occurrence: JP)
  Receive Date: 20130212
  Receipt Date: 20130322
  Transmission Date: 20140127
  Serious: Yes (Other)
  Sender: FDA-Public Use
  Company Number: JP-RANBAXY-2013RR-64938

PATIENT
  Age: 68 Year
  Sex: Female

DRUGS (5)
  1. MINOCYCLINE [Suspect]
     Indication: GRANULOMA ANNULARE
     Dosage: 200 MG/DAY
     Route: 065
  2. OFLOXACIN [Suspect]
     Indication: GRANULOMA ANNULARE
     Dosage: 400 MG/DAY
     Route: 065
  3. RIFAMPICIN [Suspect]
     Indication: GRANULOMA ANNULARE
     Dosage: 600 MG, MONTHLY
     Route: 065
  4. MINOCYCLINE [Suspect]
     Indication: GRANULOMA ANNULARE
     Dosage: 100 MG/DAY
     Route: 065
     Dates: start: 201005
  5. LEVOTHYROXINE NATRIUM [Concomitant]
     Indication: HYPOTHYROIDISM
     Route: 065

REACTIONS (1)
  - Thrombocytopenia [Recovering/Resolving]
